FAERS Safety Report 10871230 (Version 1)
Quarter: 2015Q1

REPORT INFORMATION
  Report Type: Spontaneous
  Country: KR (occurrence: None)
  Receive Date: 20150223
  Receipt Date: 20150223
  Transmission Date: 20150721
  Serious: Yes (Death)
  Sender: FDA-Public Use
  Company Number: COR_00254_2015

PATIENT
  Age: 48 Year
  Sex: Female

DRUGS (2)
  1. CARBOPLATIN (CARBOPLATIN) [Suspect]
     Active Substance: CARBOPLATIN
     Indication: LEIOMYOSARCOMA RECURRENT
     Dosage: AUC 5 OVER 30 MIN EVERY 3-WEEK CYCLE INTRAVENOUS (NOT OTHERWISE SPECIFIED
     Route: 042
  2. PACLITAXEL (PACLITAXEL) [Suspect]
     Active Substance: PACLITAXEL
     Indication: LEIOMYOSARCOMA RECURRENT
     Dosage: 175 MG/M^2, OVER 3 HOURS EVERY 3 WEEK CYCLE INTRAVENOUS (NOT OTHERWISE SPECIFIED)
     Route: 042

REACTIONS (2)
  - Septic shock [None]
  - Toxicity to various agents [None]
